FAERS Safety Report 12930079 (Version 1)
Quarter: 2016Q4

REPORT INFORMATION
  Report Type: Spontaneous
  Country: FR (occurrence: FR)
  Receive Date: 20161110
  Receipt Date: 20161110
  Transmission Date: 20170207
  Serious: Yes (Other)
  Sender: FDA-Public Use
  Company Number: FR-SA-2016SA202204

PATIENT
  Age: 47 Year
  Sex: Male

DRUGS (6)
  1. PENTASA [Concomitant]
     Active Substance: MESALAMINE
  2. GABAPENTIN. [Concomitant]
     Active Substance: GABAPENTIN
  3. RIFADINE [Suspect]
     Active Substance: RIFAMPIN
     Indication: MENINGITIS TUBERCULOUS
     Route: 048
     Dates: start: 20160419
  4. PIRILENE [Concomitant]
     Active Substance: PYRAZINAMIDE
  5. MECIR [Concomitant]
     Active Substance: TAMSULOSIN HYDROCHLORIDE
  6. IZILOX [Suspect]
     Active Substance: MOXIFLOXACIN HYDROCHLORIDE
     Indication: MENINGITIS TUBERCULOUS
     Route: 048
     Dates: start: 20160419

REACTIONS (1)
  - Neuralgia [Not Recovered/Not Resolved]

NARRATIVE: CASE EVENT DATE: 201605
